FAERS Safety Report 15712985 (Version 8)
Quarter: 2019Q2

REPORT INFORMATION
  Report Type: Report from Study
  Country: DE (occurrence: DE)
  Receive Date: 20181212
  Receipt Date: 20190504
  Transmission Date: 20190711
  Serious: Yes (Hospitalization, Other)
  Sender: FDA-Public Use
  Company Number: PHHO2018DE012877

PATIENT
  Age: 43 Year
  Sex: Female

DRUGS (14)
  1. FUROSEMIDE. [Suspect]
     Active Substance: FUROSEMIDE
     Dosage: 125 MG, QD
     Route: 048
     Dates: start: 20181126
  2. METFORMIN [Concomitant]
     Active Substance: METFORMIN HYDROCHLORIDE
     Indication: DIABETES MELLITUS
     Dosage: 500 MG, QD
     Route: 048
     Dates: start: 201803, end: 20181203
  3. AIN457 [Suspect]
     Active Substance: SECUKINUMAB
     Indication: PSORIASIS
     Dosage: 300 MG, QMO
     Route: 058
     Dates: start: 20180910
  4. NOVOTHYRAL [Concomitant]
     Active Substance: LEVOTHYROXINE SODIUM\LIOTHYRONINE SODIUM
     Dosage: 150 UG, QD
     Route: 048
     Dates: start: 20181206
  5. SPIRONOLACTONE. [Suspect]
     Active Substance: SPIRONOLACTONE
     Indication: HYPERTENSION
     Dosage: 50 MG, QD
     Route: 048
     Dates: start: 20181107, end: 20181205
  6. FUROSEMIDE. [Suspect]
     Active Substance: FUROSEMIDE
     Dosage: 40 MG, QD
     Route: 048
     Dates: start: 20181203, end: 20181203
  7. L-THYROXIN [Concomitant]
     Active Substance: LEVOTHYROXINE SODIUM
     Indication: HYPOTHYROIDISM
     Dosage: MORE THAN OR EQUAL TO 100 UG, QD
     Route: 048
     Dates: start: 20181206
  8. EXFORGE HCT [Concomitant]
     Active Substance: AMLODIPINE BESYLATE\HYDROCHLOROTHIAZIDE\VALSARTAN
     Dosage: 10/320/25 MG QD
     Route: 048
     Dates: start: 20181207
  9. NOVOTHYRAL [Concomitant]
     Active Substance: LEVOTHYROXINE SODIUM\LIOTHYRONINE SODIUM
     Indication: HYPOTHYROIDISM
     Dosage: 100 UG, BID
     Route: 048
     Dates: start: 20181126, end: 20181205
  10. ESTRADIOL. [Concomitant]
     Active Substance: ESTRADIOL
     Indication: HORMONE REPLACEMENT THERAPY
     Dosage: 1.53 MG, TID
     Route: 048
     Dates: start: 201309
  11. URIVESC [Concomitant]
     Active Substance: TROSPIUM CHLORIDE
     Indication: URINARY INCONTINENCE
     Dosage: 60 MG, QD
     Route: 048
     Dates: start: 201609
  12. FUROSEMIDE. [Suspect]
     Active Substance: FUROSEMIDE
     Indication: HYPERTENSION
     Dosage: 40 MG, BID
     Route: 048
     Dates: start: 201609, end: 20181125
  13. EXFORGE HCT [Concomitant]
     Active Substance: AMLODIPINE BESYLATE\HYDROCHLOROTHIAZIDE\VALSARTAN
     Indication: HYPERTENSION
     Dosage: 10/320/25 MG QD
     Route: 048
     Dates: start: 2016, end: 20181205
  14. MONTELUKAST [Concomitant]
     Active Substance: MONTELUKAST SODIUM
     Indication: ASTHMA
     Dosage: 10 MG, QD
     Route: 048
     Dates: start: 2017

REACTIONS (4)
  - Asthma [Recovered/Resolved]
  - Circulatory collapse [Recovered/Resolved]
  - Upper respiratory tract infection [Recovered/Resolved]
  - Tonsillitis [Recovered/Resolved]

NARRATIVE: CASE EVENT DATE: 20181112
